FAERS Safety Report 6625849-6 (Version None)
Quarter: 2010Q1

REPORT INFORMATION
  Report Type: 
  Country: None (occurrence: None)
  Receive Date: 20100310
  Receipt Date: 20100304
  Transmission Date: 20100710
  Serious: Yes (Life-Threatening, Hospitalization)
  Sender: FDA-Public Use
  Company Number: FR-ELI_LILLY_AND_COMPANY-FR201003001174

PATIENT
  Age: 91 Year
  Sex: Male

DRUGS (8)
  1. HUMULIN N [Suspect]
     Dosage: 26 U, EACH MORNING
     Route: 058
  2. HUMULIN N [Suspect]
     Dosage: 6 U, EACH EVENING
     Route: 058
  3. HUMULIN N [Suspect]
     Dosage: 24 U, EACH MORNING
     Route: 058
     Dates: start: 20090701
  4. LERCAN [Concomitant]
     Dosage: 10 MG, DAILY (1/D)
     Route: 048
  5. TRIATEC [Concomitant]
     Dosage: 5 MG, DAILY (1/D)
     Route: 048
  6. KARDEGIC [Concomitant]
     Dosage: UNK, UNKNOWN
     Route: 048
  7. IMOVANE [Concomitant]
     Dosage: UNK, UNKNOWN
     Route: 048
  8. DAFALGAN [Concomitant]
     Dosage: UNK, UNKNOWN
     Route: 048

REACTIONS (2)
  - HYPERTENSION [None]
  - HYPOGLYCAEMIC COMA [None]
